FAERS Safety Report 9530683 (Version 3)
Quarter: 2013Q4

REPORT INFORMATION
  Report Type: Spontaneous
  Country: ES (occurrence: ES)
  Receive Date: 20130918
  Receipt Date: 20131017
  Transmission Date: 20140711
  Serious: Yes (Other)
  Sender: FDA-Public Use
  Company Number: ES-ROCHE-1269483

PATIENT
  Age: 67 Year
  Sex: Male

DRUGS (5)
  1. AVASTIN [Suspect]
     Indication: MACULOPATHY
     Route: 031
     Dates: start: 20130723, end: 20130723
  2. AVASTIN [Suspect]
     Indication: OFF LABEL USE
  3. OXYBUPROCAINE [Concomitant]
     Route: 047
     Dates: start: 20130723, end: 20130723
  4. POVIDONE IODINE [Concomitant]
     Route: 047
     Dates: start: 20130723, end: 20130723
  5. POVIDONE-IODINE [Concomitant]
     Route: 061
     Dates: start: 20130723, end: 20130723

REACTIONS (2)
  - Endophthalmitis [Recovering/Resolving]
  - Suspected transmission of an infectious agent via product [Unknown]
